FAERS Safety Report 8839482 (Version 1)
Quarter: 2012Q4

REPORT INFORMATION
  Report Type: Spontaneous
  Country: US (occurrence: None)
  Receive Date: 20121011
  Receipt Date: 20121011
  Transmission Date: 20130627
  Serious: Yes (Other)
  Sender: FDA-Public Use
  Company Number: None

PATIENT
  Age: 47 Year
  Sex: Male
  Weight: 113.4 kg

DRUGS (1)
  1. DIPHENHYDRAMINE [Suspect]
     Indication: INSOMNIA
     Dosage: 25mg Ounce Daily po
     Route: 048
     Dates: start: 20120601, end: 20121003

REACTIONS (1)
  - Blood pressure increased [None]
